FAERS Safety Report 8314738-7 (Version None)
Quarter: 2012Q2

REPORT INFORMATION
  Report Type: 
  Country: None (occurrence: None)
  Receive Date: 20120426
  Receipt Date: 20120418
  Transmission Date: 20120825
  Serious: Yes (Other)
  Sender: FDA-Public Use
  Company Number: TW-ASTRAZENECA-2012SE25422

PATIENT
  Age: 69 Year
  Sex: Male

DRUGS (4)
  1. VALPROIC ACID [Interacting]
  2. MEROPENEM [Suspect]
     Indication: ANTIBIOTIC THERAPY
     Route: 042
  3. VALPROIC ACID [Interacting]
     Indication: CONVULSION
  4. VALPROIC ACID [Interacting]

REACTIONS (3)
  - DRUG INTERACTION [None]
  - ANTICONVULSANT DRUG LEVEL DECREASED [None]
  - CONVULSION [None]
